FAERS Safety Report 5131141-1 (Version None)
Quarter: 2006Q3

REPORT INFORMATION
  Report Type: 
  Country: None (occurrence: None)
  Receive Date: 20060830
  Receipt Date: 20060517
  Transmission Date: 20061208
  Serious: Yes (Other)
  Sender: FDA-Public Use
  Company Number: 200611840BWH

PATIENT
  Age: 14 Year
  Sex: Male
  Weight: 49.8957 kg

DRUGS (2)
  1. TRASYLOL [Suspect]
     Indication: HEART TRANSPLANT
     Dosage: SEE IMAGE
     Route: 042
     Dates: start: 20060313
  2. TRASYLOL [Suspect]
     Indication: HEART TRANSPLANT
     Dosage: SEE IMAGE
     Route: 042
     Dates: start: 20060313

REACTIONS (1)
  - ANAPHYLACTIC REACTION [None]
